FAERS Safety Report 6496740-3 (Version None)
Quarter: 2009Q4

REPORT INFORMATION
  Report Type: 
  Country: None (occurrence: None)
  Receive Date: 20091211
  Receipt Date: 20091201
  Transmission Date: 20100525
  Serious: Yes (Death)
  Sender: FDA-Public Use
  Company Number: 086

PATIENT
  Age: 40 Year
  Sex: Male
  Weight: 45.3597 kg

DRUGS (4)
  1. FAZA CLO  ODT [Suspect]
     Indication: SCHIZOPHRENIA
     Dosage: 700 MG PO DAILY
     Route: 048
     Dates: start: 20061120, end: 20061208
  2. ABILIFY [Concomitant]
  3. EFFEXOR XR [Concomitant]
  4. KLONOPIN [Concomitant]

REACTIONS (3)
  - DISEASE COMPLICATION [None]
  - DYSPHAGIA [None]
  - RESPIRATORY FAILURE [None]
